FAERS Safety Report 6740643-3 (Version None)
Quarter: 2010Q2

REPORT INFORMATION
  Report Type: 
  Country: None (occurrence: None)
  Receive Date: 20100525
  Receipt Date: 20100514
  Transmission Date: 20101027
  Serious: Yes (Hospitalization)
  Sender: FDA-Public Use
  Company Number: US-WYE-H15188010

PATIENT
  Sex: Female
  Weight: 64.92 kg

DRUGS (5)
  1. PRISTIQ [Suspect]
     Indication: NERVOUSNESS
     Dates: start: 20090101, end: 20090101
  2. PRISTIQ [Suspect]
     Dates: start: 20100101
  3. VITAMIN B-12 [Concomitant]
     Dosage: UNKNOWN
  4. FISH OIL, HYDROGENATED [Concomitant]
     Dosage: UNKNOWN
  5. PREVACID [Concomitant]
     Indication: GASTRIC DISORDER

REACTIONS (3)
  - CYST RUPTURE [None]
  - DRUG INEFFECTIVE [None]
  - OEDEMA PERIPHERAL [None]
